FAERS Safety Report 4874353-4 (Version None)
Quarter: 2006Q1

REPORT INFORMATION
  Report Type: 
  Country: None (occurrence: None)
  Receive Date: 20060103
  Receipt Date: 20060103
  Transmission Date: 20060701
  Serious: Yes (Hospitalization, Other)
  Sender: FDA-Public Use
  Company Number: None

PATIENT
  Age: 22 Year
  Sex: Male

DRUGS (1)
  1. FENTANYL [Suspect]
     Indication: PROCEDURAL PAIN
     Dosage: Q 72 HR
     Dates: start: 20050430, end: 20050503

REACTIONS (7)
  - ADHESION [None]
  - BOWEL SOUNDS ABNORMAL [None]
  - CONSTIPATION [None]
  - LETHARGY [None]
  - POST PROCEDURAL COMPLICATION [None]
  - SMALL INTESTINAL OBSTRUCTION [None]
  - VOMITING [None]
